FAERS Safety Report 6695001-7 (Version None)
Quarter: 2010Q2

REPORT INFORMATION
  Report Type: 
  Country: None (occurrence: None)
  Receive Date: 20100423
  Receipt Date: 20100412
  Transmission Date: 20101027
  Serious: Yes (Other)
  Sender: FDA-Public Use
  Company Number: PHHY2010GB11210

PATIENT
  Sex: Male

DRUGS (1)
  1. CLOZARIL [Suspect]
     Indication: SCHIZOPHRENIA
     Dosage: 225 MG, BID
     Dates: start: 20040906

REACTIONS (3)
  - GINGIVAL BLEEDING [None]
  - LIP HAEMORRHAGE [None]
  - PLATELET COUNT DECREASED [None]
